FAERS Safety Report 21275835 (Version 1)
Quarter: 2022Q3

REPORT INFORMATION
  Report Type: Spontaneous
  Country: US (occurrence: US)
  Receive Date: 20220831
  Receipt Date: 20220831
  Transmission Date: 20221026
  Serious: No
  Sender: FDA-Public Use
  Company Number: US-ABBVIE-22K-163-4227738-00

PATIENT
  Age: 26 Year
  Sex: Female
  Weight: 72.640 kg

DRUGS (1)
  1. HUMIRA [Suspect]
     Active Substance: ADALIMUMAB
     Indication: Product used for unknown indication
     Route: 058
     Dates: start: 2021, end: 2021

REACTIONS (2)
  - Liquid product physical issue [Unknown]
  - Somnolence [Unknown]

NARRATIVE: CASE EVENT DATE: 20220106
